FAERS Safety Report 17136234 (Version 1)
Quarter: 2019Q4

REPORT INFORMATION
  Report Type: Spontaneous
  Country: CN (occurrence: CN)
  Receive Date: 20191210
  Receipt Date: 20191210
  Transmission Date: 20200122
  Serious: Yes (Hospitalization)
  Sender: FDA-Public Use
  Company Number: CN-FRESENIUS KABI-FK201913550

PATIENT
  Age: 82 Year
  Sex: Female
  Weight: 50 kg

DRUGS (2)
  1. GLYCINE/PYRIDOXINE HYDROCHLORIDE/BIOTIN/FOLIC ACID/CYANOCOBALAMIN/NICOTINAMIDE/RIBOFLAVIN SODIUM PHO [Concomitant]
     Indication: NUTRITIONAL SUPPLEMENTATION
     Dosage: 10ML QD
     Route: 041
     Dates: start: 20191126, end: 20191126
  2. KABIVEN [Suspect]
     Active Substance: AMINO ACIDS\ANHYDROUS DEXTROSE\CALCIUM CHLORIDE\MAGNESIUM SULFATE HEPTAHYDRATE\POTASSIUM CHLORIDE\SODIUM ACETATE\SODIUM GLYCEROPHOSPHATE ANHYDROUS\SOYBEAN OIL
     Indication: NUTRITIONAL SUPPLEMENTATION
     Dosage: 1026ML QD
     Route: 041
     Dates: start: 20191126, end: 20191126

REACTIONS (2)
  - Body temperature increased [Recovered/Resolved]
  - Chills [Recovered/Resolved]

NARRATIVE: CASE EVENT DATE: 20191126
